FAERS Safety Report 13232479 (Version 1)
Quarter: 2017Q1

REPORT INFORMATION
  Report Type: Report from Study
  Country: None (occurrence: US)
  Receive Date: 20170214
  Receipt Date: 20170214
  Transmission Date: 20170428
  Serious: Yes (Hospitalization, Congenital Anomaly, Other)
  Sender: FDA-Public Use
  Company Number: US-AMAG PHARMACEUTICALS, INC.-AMAG201600923

PATIENT

DRUGS (1)
  1. MAKENA [Suspect]
     Active Substance: HYDROXYPROGESTERONE CAPROATE
     Indication: EXPOSURE DURING PREGNANCY
     Dosage: 250 MG, WEEKLY
     Route: 065
     Dates: start: 20160324, end: 20160428

REACTIONS (10)
  - Patent ductus arteriosus [Unknown]
  - Sepsis [Recovered/Resolved]
  - Dermatitis diaper [Recovered/Resolved]
  - Jaundice neonatal [Recovered/Resolved]
  - Skin disorder [Recovered/Resolved]
  - Hypotension [Recovered/Resolved]
  - Premature baby [Unknown]
  - Anaemia neonatal [Unknown]
  - Double heterozygous sickling disorders [Unknown]
  - Neonatal respiratory distress syndrome [Recovered/Resolved]

NARRATIVE: CASE EVENT DATE: 20140524
